FAERS Safety Report 4441208-9 (Version None)
Quarter: 2004Q3

REPORT INFORMATION
  Report Type: 
  Country: None (occurrence: None)
  Receive Date: 20040728
  Receipt Date: 20040331
  Transmission Date: 20050211
  Serious: No
  Sender: FDA-Public Use
  Company Number: USA040463729

PATIENT
  Age: 35 Year
  Sex: Male
  Weight: 70 kg

DRUGS (1)
  1. STRATTERA [Suspect]
     Indication: ATTENTION DEFICIT/HYPERACTIVITY DISORDER
     Dosage: 50 MG/  DAY
     Dates: start: 20040201

REACTIONS (5)
  - AGITATION [None]
  - CHILLS [None]
  - DYSURIA [None]
  - EXCITABILITY [None]
  - INSOMNIA [None]
